FAERS Safety Report 8522295-5 (Version None)
Quarter: 2012Q3

REPORT INFORMATION
  Report Type: 
  Country: None (occurrence: None)
  Receive Date: 20120719
  Receipt Date: 20120710
  Transmission Date: 20120928
  Serious: Yes (Death)
  Sender: FDA-Public Use
  Company Number: US-ACTELION-A-US2011-53644

PATIENT

DRUGS (2)
  1. TRACLEER [Suspect]
     Indication: PULMONARY ARTERIAL HYPERTENSION
     Dosage: UNK
     Route: 048
     Dates: start: 20021218, end: 20110903
  2. ADCIRCA [Concomitant]

REACTIONS (1)
  - LYMPHOMA [None]
